FAERS Safety Report 4399416-1 (Version None)
Quarter: 2004Q3

REPORT INFORMATION
  Report Type: 
  Country: None (occurrence: None)
  Receive Date: 20040712
  Receipt Date: 20040708
  Transmission Date: 20050211
  Serious: Yes (Death)
  Sender: FDA-Public Use
  Company Number: 04-07-0971

PATIENT
  Age: 40 Year
  Sex: Male

DRUGS (1)
  1. CLOZAPINE [Suspect]
     Indication: SCHIZOPHRENIA
     Dosage: 600-900 QD ORAL
     Route: 048
     Dates: start: 20001001, end: 20040601

REACTIONS (3)
  - INFLUENZA [None]
  - LUNG DISORDER [None]
  - SMOKER [None]
